FAERS Safety Report 17563000 (Version 1)
Quarter: 2020Q1

REPORT INFORMATION
  Report Type: Spontaneous
  Country: KR (occurrence: KR)
  Receive Date: 20200320
  Receipt Date: 20200320
  Transmission Date: 20200409
  Serious: Yes (Congenital Anomaly, Other)
  Sender: FDA-Public Use
  Company Number: KR-LUNDBECK-DKLU3014191

PATIENT
  Age: 5 Year
  Sex: Male

DRUGS (2)
  1. LAMOTRIGINE. [Suspect]
     Active Substance: LAMOTRIGINE
     Indication: BENIGN ROLANDIC EPILEPSY
     Route: 048
  2. CLOBAZAM. [Suspect]
     Active Substance: CLOBAZAM
     Indication: BENIGN ROLANDIC EPILEPSY
     Route: 048

REACTIONS (2)
  - Sudden visual loss [Unknown]
  - Eye pain [Unknown]
